FAERS Safety Report 5764155-9 (Version None)
Quarter: 2008Q2

REPORT INFORMATION
  Report Type: 
  Country: None (occurrence: None)
  Receive Date: 20080605
  Receipt Date: 20080522
  Transmission Date: 20081010
  Serious: Yes (Hospitalization, Disabling)
  Sender: FDA-Public Use
  Company Number: APP200800117

PATIENT
  Age: 18 Year
  Sex: Male

DRUGS (6)
  1. SENSORCAINE-MPF WITH EPINEPHRINE (BUPIVACAINE HYDROCHLORIDE) [Suspect]
     Indication: MUSCULOSKELETAL PAIN
     Dosage: CONTINUOUS VIA PAIN PUMP INTO SHOULDER
     Dates: start: 20000215
  2. XYLOCAINE [Suspect]
     Indication: MUSCULOSKELETAL PAIN
     Dosage: 100 ML
     Dates: start: 20000216
  3. SENSORCAINE [Suspect]
     Indication: MUSCULOSKELETAL PAIN
     Dosage: 120 ML
     Dates: start: 20000215
  4. MITEK THERMAL PROBE [Suspect]
     Indication: SURGERY
     Dates: start: 20000215
  5. DONJOY PAIN PUMP [Suspect]
     Indication: MUSCULOSKELETAL PAIN
     Dates: start: 20000215
  6. ANTIBIOTICS (ANTIBIOTICS) [Concomitant]

REACTIONS (4)
  - CHONDROLYSIS [None]
  - JOINT RANGE OF MOTION DECREASED [None]
  - MOVEMENT DISORDER [None]
  - MUSCULOSKELETAL PAIN [None]
